FAERS Safety Report 9506125 (Version 1)
Quarter: 2013Q1

REPORT INFORMATION
  Report Type: Spontaneous
  Country: US (occurrence: None)
  Receive Date: 20130305
  Receipt Date: 20130305
  Transmission Date: 20140127
  Serious: No
  Sender: FDA-Public Use
  Company Number: 1000040415

PATIENT
  Sex: Female

DRUGS (1)
  1. DALIRESP [Suspect]
     Indication: ASTHMA
     Route: 048
     Dates: start: 2012

REACTIONS (4)
  - Insomnia [None]
  - Restlessness [None]
  - Hyperhidrosis [None]
  - Off label use [None]
